FAERS Safety Report 6258881-5 (Version None)
Quarter: 2009Q3

REPORT INFORMATION
  Report Type: 
  Country: None (occurrence: None)
  Receive Date: 20090702
  Receipt Date: 20090616
  Transmission Date: 20100115
  Serious: Yes (Death)
  Sender: FDA-Public Use
  Company Number: 2009US000011

PATIENT
  Age: 75 Year
  Sex: Male
  Weight: 81.2 kg

DRUGS (3)
  1. ENTEREG [Suspect]
     Indication: POSTOPERATIVE ILEUS
     Dosage: 12 MG; BID; PO
     Route: 048
     Dates: start: 20081208, end: 20081210
  2. POTASSIUM CHLORIDE [Concomitant]
  3. MAGNESIUM SULFATE [Concomitant]

REACTIONS (1)
  - VENTRICULAR FIBRILLATION [None]
